FAERS Safety Report 9026452 (Version 1)
Quarter: 2013Q1

REPORT INFORMATION
  Report Type: Spontaneous
  Country: US (occurrence: US)
  Receive Date: 20130123
  Receipt Date: 20130123
  Transmission Date: 20140127
  Serious: Yes (Other)
  Sender: FDA-Public Use
  Company Number: US-JNJFOC-20130111965

PATIENT
  Sex: 0

DRUGS (3)
  1. LEVAQUIN [Suspect]
     Indication: FOETAL EXPOSURE DURING PREGNANCY
     Route: 064
     Dates: start: 20130111
  2. PRENATAL VITAMINS [Concomitant]
     Route: 065
  3. IRON MEDICINE [Concomitant]
     Route: 065

REACTIONS (1)
  - Premature baby [Not Recovered/Not Resolved]
